FAERS Safety Report 9807494 (Version 1)
Quarter: 2014Q1

REPORT INFORMATION
  Report Type: Spontaneous
  Country: US (occurrence: US)
  Receive Date: 20140110
  Receipt Date: 20140110
  Transmission Date: 20141002
  Serious: No
  Sender: FDA-Public Use
  Company Number: US-SA-2013SA096009

PATIENT
  Sex: Female
  Weight: 82 kg

DRUGS (7)
  1. PLAVIX [Suspect]
     Dates: start: 201307
  2. METOPROLOL [Concomitant]
  3. FUROSEMIDE [Concomitant]
  4. NOVOLOG [Concomitant]
  5. LANTUS [Concomitant]
  6. ASPIRIN [Concomitant]
  7. LISINOPRIL [Concomitant]

REACTIONS (4)
  - Feeling abnormal [Unknown]
  - Weight fluctuation [Unknown]
  - Headache [Unknown]
  - Drug dose omission [Unknown]
